FAERS Safety Report 14903404 (Version 1)
Quarter: 2018Q2

REPORT INFORMATION
  Report Type: Spontaneous
  Country: US (occurrence: US)
  Receive Date: 20180516
  Receipt Date: 20180516
  Transmission Date: 20180711
  Serious: No
  Sender: FDA-Public Use
  Company Number: US-SA-2017SA140717

PATIENT
  Age: 69 Year
  Sex: Female

DRUGS (8)
  1. SOLOSTAR [Concomitant]
     Active Substance: DEVICE
     Indication: TYPE 2 DIABETES MELLITUS
     Dates: start: 201706
  2. TRESIBA [Concomitant]
     Active Substance: INSULIN DEGLUDEC
     Dates: end: 201706
  3. SOLOSTAR [Concomitant]
     Active Substance: DEVICE
     Indication: TYPE 2 DIABETES MELLITUS
     Dates: start: 201706
  4. LANTUS SOLOSTAR [Suspect]
     Active Substance: INSULIN GLARGINE
     Indication: TYPE 2 DIABETES MELLITUS
     Dosage: DOSE:30 UNIT(S)
     Route: 051
     Dates: start: 201706
  5. LANTUS SOLOSTAR [Suspect]
     Active Substance: INSULIN GLARGINE
     Indication: TYPE 2 DIABETES MELLITUS
     Dosage: DOSE: CHANGES BASED ON BLOOD SUGAR LEVEL
     Route: 051
     Dates: start: 201706
  6. LANTUS SOLOSTAR [Suspect]
     Active Substance: INSULIN GLARGINE
     Indication: TYPE 2 DIABETES MELLITUS
     Dosage: DOSE:5 UNIT(S)
     Route: 051
     Dates: start: 201706
  7. HUMALOG [Concomitant]
     Active Substance: INSULIN LISPRO
     Route: 065
  8. SOLOSTAR [Concomitant]
     Active Substance: DEVICE
     Indication: TYPE 2 DIABETES MELLITUS
     Dates: start: 201706

REACTIONS (7)
  - Pain [Unknown]
  - Dizziness [Unknown]
  - Condition aggravated [Unknown]
  - Product use issue [Unknown]
  - Abdominal pain [Unknown]
  - Blood glucose decreased [Unknown]
  - Glycosylated haemoglobin increased [Unknown]

NARRATIVE: CASE EVENT DATE: 2017
